FAERS Safety Report 4356576-6 (Version None)
Quarter: 2004Q2

REPORT INFORMATION
  Report Type: 
  Country: None (occurrence: None)
  Receive Date: 20040510
  Receipt Date: 20040510
  Transmission Date: 20050107
  Serious: No
  Sender: FDA-Public Use
  Company Number: None

PATIENT
  Age: 45 Year
  Sex: Female
  Weight: 117.9352 kg

DRUGS (1)
  1. BACTRIM [Suspect]
     Indication: URINARY TRACT INFECTION
     Dates: start: 20040425, end: 20040427

REACTIONS (22)
  - ARTHRALGIA [None]
  - ARTHROPATHY [None]
  - ASTHENIA [None]
  - BLISTER [None]
  - CHEST PAIN [None]
  - CHILLS [None]
  - DRUG HYPERSENSITIVITY [None]
  - EYE PAIN [None]
  - EYE REDNESS [None]
  - GASTROOESOPHAGEAL REFLUX DISEASE [None]
  - INFLAMMATION LOCALISED [None]
  - JOINT SWELLING [None]
  - OEDEMA PERIPHERAL [None]
  - OESOPHAGEAL PAIN [None]
  - PAIN IN EXTREMITY [None]
  - PARAESTHESIA [None]
  - PEPTIC ULCER [None]
  - PYREXIA [None]
  - RASH [None]
  - SKIN DISCOLOURATION [None]
  - STOMATITIS [None]
  - THROAT IRRITATION [None]
